FAERS Safety Report 10558841 (Version 3)
Quarter: 2014Q4

REPORT INFORMATION
  Report Type: Report from Study
  Country: KR (occurrence: KR)
  Receive Date: 20141031
  Receipt Date: 20141120
  Transmission Date: 20150529
  Serious: Yes (Hospitalization)
  Sender: FDA-Public Use
  Company Number: KR-ROCHE-1481282

PATIENT
  Age: 62 Year
  Sex: Male
  Weight: 45.5 kg

DRUGS (33)
  1. TRASTUZUMAB [Suspect]
     Active Substance: TRASTUZUMAB
     Dosage: MAINTAINANCE DOSE: 299 MG?MOST RECENT DOSE ON 13/OCT/2014.
     Route: 042
  2. NASEA [Concomitant]
     Active Substance: RAMOSETRON HYDROCHLORIDE
     Indication: NAUSEA
     Route: 042
     Dates: start: 20140806
  3. MACPERAN [Concomitant]
     Indication: NAUSEA
     Route: 048
     Dates: start: 20140830
  4. TARGIN [Concomitant]
     Active Substance: NALOXONE HYDROCHLORIDE\OXYCODONE HYDROCHLORIDE
     Dosage: STRENGTH: 20/10 MG
     Route: 048
     Dates: start: 20141004, end: 20141005
  5. MAGNESIUM SULFATE. [Concomitant]
     Active Substance: MAGNESIUM SULFATE
     Indication: ELECTROLYTE IMBALANCE
     Route: 042
     Dates: start: 20140829
  6. MORPHINE HCL [Concomitant]
     Active Substance: MORPHINE HYDROCHLORIDE
     Indication: ABDOMINAL PAIN UPPER
     Route: 042
     Dates: start: 20140929, end: 20141001
  7. DIFLUCAN [Concomitant]
     Active Substance: FLUCONAZOLE
     Indication: OESOPHAGEAL CANDIDIASIS
     Route: 042
     Dates: start: 20140929, end: 20140929
  8. IRCODON [Concomitant]
     Indication: HEADACHE
     Route: 048
     Dates: start: 20141006
  9. CISPLATIN. [Suspect]
     Active Substance: CISPLATIN
     Indication: HER-2 POSITIVE GASTRIC CANCER
     Dosage: MOST RECENT DOSE ON 13/OCT/2014
     Route: 042
     Dates: start: 20140806, end: 20141013
  10. EMEND [Concomitant]
     Active Substance: APREPITANT
     Indication: VOMITING
     Route: 048
     Dates: start: 20141014, end: 20141015
  11. ULTRACET [Concomitant]
     Active Substance: ACETAMINOPHEN\TRAMADOL HYDROCHLORIDE
     Indication: HEADACHE
     Route: 048
     Dates: start: 20141001, end: 20141026
  12. REMERON [Concomitant]
     Active Substance: MIRTAZAPINE
     Indication: COGNITIVE DISORDER
     Route: 048
     Dates: start: 20141101
  13. TRASTUZUMAB [Suspect]
     Active Substance: TRASTUZUMAB
     Indication: HER-2 POSITIVE GASTRIC CANCER
     Dosage: LOADING DOSE
     Route: 042
     Dates: start: 20140806
  14. TARGIN [Concomitant]
     Active Substance: NALOXONE HYDROCHLORIDE\OXYCODONE HYDROCHLORIDE
     Indication: ABDOMINAL PAIN UPPER
     Dosage: STRENGTH: 10/5 MG
     Route: 048
     Dates: start: 20141006, end: 20141010
  15. GASTER (SOUTH KOREA) [Concomitant]
     Indication: GASTRITIS
     Route: 042
     Dates: start: 20141028, end: 20141028
  16. PLUNAZOL [Concomitant]
     Indication: OESOPHAGEAL CANDIDIASIS
     Route: 048
     Dates: start: 20141001, end: 20141007
  17. EMEND [Concomitant]
     Active Substance: APREPITANT
     Indication: NAUSEA
     Route: 048
     Dates: start: 20140806
  18. ZANTAC [Concomitant]
     Active Substance: RANITIDINE HYDROCHLORIDE
     Indication: GASTRITIS
     Route: 048
     Dates: start: 20141014, end: 20141016
  19. SODIUM BICARBONATE. [Concomitant]
     Active Substance: SODIUM BICARBONATE
     Indication: STOMATITIS
     Route: 050
     Dates: start: 20140904
  20. TARGIN [Concomitant]
     Active Substance: NALOXONE HYDROCHLORIDE\OXYCODONE HYDROCHLORIDE
     Dosage: STRENGTH: 40/20 MG
     Route: 048
     Dates: start: 20141001, end: 20141003
  21. LASIX [Concomitant]
     Active Substance: FUROSEMIDE
     Indication: HYPERVOLAEMIA
     Route: 042
     Dates: start: 20140829
  22. DIFLUCAN [Concomitant]
     Active Substance: FLUCONAZOLE
     Indication: OESOPHAGEAL CANDIDIASIS
     Route: 042
     Dates: start: 20140930, end: 20141001
  23. DUPHALAC-EASY [Concomitant]
     Indication: CONSTIPATION
     Route: 048
     Dates: start: 20141102
  24. WINUF [Concomitant]
     Indication: DECREASED APPETITE
     Route: 042
     Dates: start: 20141029, end: 20141103
  25. PLACEBO [Suspect]
     Active Substance: UNSPECIFIED INGREDIENT
     Indication: HER-2 POSITIVE GASTRIC CANCER
     Dosage: MOST RECENT DOSE ON 13/OCT/2014
     Route: 042
     Dates: start: 20140806
  26. CAPECITABINE. [Suspect]
     Active Substance: CAPECITABINE
     Indication: HER-2 POSITIVE GASTRIC CANCER
     Dosage: MOST RECENT DOSE ON 16/OCT/2014.
     Route: 048
     Dates: start: 20140806, end: 20141016
  27. DEXAMETHASONE. [Concomitant]
     Active Substance: DEXAMETHASONE
     Indication: NAUSEA
     Route: 042
     Dates: start: 20140406
  28. DEXAMETHASONE. [Concomitant]
     Active Substance: DEXAMETHASONE
     Indication: VOMITING
     Dosage: SELECT IF ONGOING=NO
     Route: 048
     Dates: start: 20141014, end: 20141016
  29. MACPERAN [Concomitant]
     Route: 042
     Dates: start: 20141028, end: 20141029
  30. GASTER (SOUTH KOREA) [Concomitant]
     Indication: ABDOMINAL PAIN UPPER
     Route: 042
     Dates: start: 20140929, end: 20140930
  31. LIDOCAIN [Concomitant]
     Indication: STOMATITIS
     Route: 050
     Dates: start: 20140929, end: 20140930
  32. NYSTATIN. [Concomitant]
     Active Substance: NYSTATIN
     Indication: STOMATITIS
     Route: 050
     Dates: start: 20141001, end: 20141010
  33. NASEA [Concomitant]
     Active Substance: RAMOSETRON HYDROCHLORIDE
     Indication: VOMITING

REACTIONS (1)
  - Cerebral infarction [Not Recovered/Not Resolved]

NARRATIVE: CASE EVENT DATE: 20141026
